FAERS Safety Report 24776658 (Version 1)
Quarter: 2024Q4

REPORT INFORMATION
  Report Type: Spontaneous
  Country: PT (occurrence: PT)
  Receive Date: 20241226
  Receipt Date: 20241226
  Transmission Date: 20250114
  Serious: Yes (Other)
  Sender: AZURITY PHARMACEUTICALS
  Company Number: PT-AZURITY PHARMACEUTICALS, INC.-AZR202412-001338

PATIENT
  Age: 70 Year
  Sex: Female

DRUGS (2)
  1. METHOTREXATE [Suspect]
     Active Substance: METHOTREXATE
     Indication: Neurodermatitis
     Dosage: TOOK 10 MG OF MTX DAILY FOR AN ENTIRE WEEK
     Route: 065
  2. FOLIC ACID [Concomitant]
     Active Substance: FOLIC ACID
     Indication: Supplementation therapy
     Dosage: UNK
     Route: 065

REACTIONS (8)
  - Acidosis [Recovered/Resolved]
  - Acute kidney injury [Recovered/Resolved]
  - Pancytopenia [Recovered/Resolved]
  - Candida infection [Unknown]
  - Toxicity to various agents [Unknown]
  - Alopecia [Unknown]
  - Mucocutaneous ulceration [Recovering/Resolving]
  - Inappropriate schedule of product administration [Unknown]
